FAERS Safety Report 13671003 (Version 1)
Quarter: 2017Q2

REPORT INFORMATION
  Report Type: Spontaneous
  Country: US (occurrence: US)
  Receive Date: 20170620
  Receipt Date: 20170620
  Transmission Date: 20170830
  Serious: No
  Sender: FDA-Public Use
  Company Number: US-ROCHE-1539227

PATIENT
  Sex: Male

DRUGS (1)
  1. XELODA [Suspect]
     Active Substance: CAPECITABINE
     Indication: PRODUCT USED FOR UNKNOWN INDICATION
     Dosage: WITH FOOD, 3 WEEKS ON 1 WEEK OFF, 3 TABLET
     Route: 048
     Dates: start: 20130423

REACTIONS (1)
  - Drug ineffective [Unknown]
